FAERS Safety Report 7516048-4 (Version None)
Quarter: 2011Q2

REPORT INFORMATION
  Report Type: 
  Country: None (occurrence: None)
  Receive Date: 20110601
  Receipt Date: 20110527
  Transmission Date: 20111010
  Serious: Yes (Death)
  Sender: FDA-Public Use
  Company Number: MX-SANOFI-AVENTIS-2011SA033795

PATIENT
  Age: 99 Year
  Sex: Female

DRUGS (2)
  1. PLAVIX [Suspect]
     Indication: ARTERIAL INSUFFICIENCY
     Route: 048
     Dates: start: 20070101, end: 20110519
  2. ENALAPRIL MALEATE [Concomitant]
     Indication: HYPERTENSION
     Route: 048
     Dates: end: 20110519

REACTIONS (3)
  - CHEST PAIN [None]
  - PULMONARY EMBOLISM [None]
  - DYSPNOEA [None]
